FAERS Safety Report 16259955 (Version 1)
Quarter: 2019Q2

REPORT INFORMATION
  Report Type: Spontaneous
  Country: DE (occurrence: DE)
  Receive Date: 20190501
  Receipt Date: 20190501
  Transmission Date: 20190711
  Serious: Yes (Other)
  Sender: FDA-Public Use
  Company Number: DE-BAYER-2019-085264

PATIENT
  Sex: Female

DRUGS (1)
  1. GADOVIST [Suspect]
     Active Substance: GADOBUTROL
     Indication: NUCLEAR MAGNETIC RESONANCE IMAGING
     Dosage: UNK, ONCE
     Dates: start: 20190424, end: 20190424

REACTIONS (4)
  - Paraesthesia [None]
  - Hemianaesthesia [None]
  - Thermoanaesthesia [None]
  - Tenderness [None]

NARRATIVE: CASE EVENT DATE: 20190425
